FAERS Safety Report 15012868 (Version 1)
Quarter: 2018Q2

REPORT INFORMATION
  Report Type: Spontaneous
  Country: JP (occurrence: JP)
  Receive Date: 20180614
  Receipt Date: 20180614
  Transmission Date: 20180711
  Serious: Yes (Other)
  Sender: FDA-Public Use
  Company Number: PHJP2018JP012410

PATIENT
  Sex: Female

DRUGS (1)
  1. PASIREOTIDE. [Suspect]
     Active Substance: PASIREOTIDE
     Indication: ACROMEGALY
     Dosage: UNK
     Route: 030

REACTIONS (1)
  - Diabetes mellitus [Unknown]
